FAERS Safety Report 25617311 (Version 2)
Quarter: 2025Q3

REPORT INFORMATION
  Report Type: Spontaneous
  Country: JP (occurrence: JP)
  Receive Date: 20250729
  Receipt Date: 20250814
  Transmission Date: 20251020
  Serious: Yes (Hospitalization, Other)
  Sender: GILEAD
  Company Number: JP-GILEAD-2025-0722032

PATIENT
  Age: 7 Decade
  Sex: Male

DRUGS (7)
  1. YESCARTA [Suspect]
     Active Substance: AXICABTAGENE CILOLEUCEL
     Indication: Diffuse large B-cell lymphoma
     Route: 041
     Dates: start: 20250529, end: 20250529
  2. FLUDARABINE PHOSPHATE [Concomitant]
     Active Substance: FLUDARABINE PHOSPHATE
     Indication: Lymphodepletion
     Dates: start: 20250521, end: 20250522
  3. FLUDARABINE PHOSPHATE [Concomitant]
     Active Substance: FLUDARABINE PHOSPHATE
     Indication: Chemotherapy
     Dates: start: 20250526
  4. CYCLOPHOSPHAMIDE [Concomitant]
     Active Substance: CYCLOPHOSPHAMIDE
     Indication: Lymphodepletion
     Dates: start: 20250521, end: 20250522
  5. CYCLOPHOSPHAMIDE [Concomitant]
     Active Substance: CYCLOPHOSPHAMIDE
     Indication: Chemotherapy
     Dates: start: 20250526
  6. CORTRIL [Concomitant]
     Active Substance: HYDROCORTISONE
     Indication: Adrenal insufficiency
     Route: 048
  7. CORTRIL [Concomitant]
     Active Substance: HYDROCORTISONE
     Route: 048
     Dates: start: 20250529

REACTIONS (2)
  - Cytokine release syndrome [Recovered/Resolved]
  - Immune effector cell-associated neurotoxicity syndrome [Recovering/Resolving]

NARRATIVE: CASE EVENT DATE: 20250530
